FAERS Safety Report 6336876-0 (Version None)
Quarter: 2009Q3

REPORT INFORMATION
  Report Type: 
  Country: None (occurrence: None)
  Receive Date: 20090901
  Receipt Date: 20090821
  Transmission Date: 20100115
  Serious: Yes (Hospitalization)
  Sender: FDA-Public Use
  Company Number: PHHY2009CA29897

PATIENT
  Sex: Female
  Weight: 115 kg

DRUGS (2)
  1. EXJADE [Suspect]
     Indication: MYELODYSPLASTIC SYNDROME
     Dosage: 3000 MG UNK
     Route: 048
     Dates: start: 20080301
  2. BLOOD CELLS, PACKED HUMAN [Concomitant]
     Dosage: 2 U, BIW

REACTIONS (9)
  - ARTHRALGIA [None]
  - BLOOD GLUCOSE INCREASED [None]
  - BLOOD PRESSURE INCREASED [None]
  - FEMORAL NECK FRACTURE [None]
  - GROIN PAIN [None]
  - LIMB DEFORMITY [None]
  - TENDERNESS [None]
  - WEIGHT BEARING DIFFICULTY [None]
  - WHITE BLOOD CELL COUNT INCREASED [None]
